FAERS Safety Report 6564468-7 (Version None)
Quarter: 2010Q1

REPORT INFORMATION
  Report Type: 
  Country: None (occurrence: None)
  Receive Date: 20100201
  Receipt Date: 20100119
  Transmission Date: 20100710
  Serious: Yes (Hospitalization)
  Sender: FDA-Public Use
  Company Number: US-SANOFI-AVENTIS-200919358US

PATIENT
  Age: 61 Year
  Sex: Female

DRUGS (17)
  1. SOLOSTAR [Suspect]
     Route: 058
  2. LANTUS [Suspect]
     Dosage: DOSE:10 UNIT(S)
     Route: 058
     Dates: start: 20070101
  3. LANTUS [Suspect]
     Dosage: DOSE:30 UNIT(S)
     Route: 058
     Dates: end: 20090901
  4. LANTUS [Suspect]
     Dosage: DOSE:40 UNIT(S)
     Route: 058
     Dates: start: 20090901
  5. NOVOLOG MIX 70/30 [Concomitant]
     Dosage: DOSE AS USED: 10 UNITS IN AM AND IF OVER 220 14 UITS PER SLIDING SCALE
  6. ABILIFY [Concomitant]
     Dosage: DOSE AS USED: UNK
  7. HYDROXYZINE PAMOATE [Concomitant]
     Dosage: DOSE AS USED: UNK
  8. MIRAPEX ^PHARMACIA + UPJOHN^ [Concomitant]
     Dosage: DOSE AS USED: UNK
  9. POTASSIUM [Concomitant]
     Dosage: DOSE AS USED: UNK
  10. TRAMADOL [Concomitant]
     Dosage: DOSE AS USED: UNK
  11. LASIX [Concomitant]
     Dosage: DOSE AS USED: UNK
  12. CYMBALTA [Concomitant]
     Dosage: DOSE AS USED: UNK
  13. BUSPAR [Concomitant]
     Dosage: DOSE AS USED: UNK
  14. METOPROLOL SUCCINATE [Concomitant]
     Dosage: DOSE AS USED: UNK
  15. LYRICA [Concomitant]
     Dosage: DOSE AS USED: UNK
  16. CLONAZEPAM [Concomitant]
     Dosage: DOSE AS USED: UNK
  17. GABAPENTIN [Concomitant]
     Dosage: DOSE AS USED: UNK

REACTIONS (3)
  - BLOOD GLUCOSE INCREASED [None]
  - DELIRIUM [None]
  - HYPERGLYCAEMIA [None]
